FAERS Safety Report 10762417 (Version 2)
Quarter: 2015Q1

REPORT INFORMATION
  Report Type: Report from Study
  Country: US (occurrence: US)
  Receive Date: 20150204
  Receipt Date: 20150206
  Transmission Date: 20150721
  Serious: Yes (Other)
  Sender: FDA-Public Use
  Company Number: PHEH2015US001803

PATIENT
  Age: 59 Year
  Sex: Female

DRUGS (1)
  1. GILENYA [Suspect]
     Active Substance: FINGOLIMOD HYDROCHLORIDE
     Indication: MULTIPLE SCLEROSIS
     Dosage: 0.5 MG, QD
     Route: 048
     Dates: start: 20150121

REACTIONS (3)
  - ECG signs of myocardial ischaemia [Unknown]
  - Sinus arrhythmia [Unknown]
  - Electrocardiogram T wave inversion [Unknown]

NARRATIVE: CASE EVENT DATE: 20150121
